FAERS Safety Report 23060956 (Version 3)
Quarter: 2024Q1

REPORT INFORMATION
  Report Type: Report from Study
  Country: US (occurrence: US)
  Receive Date: 20231012
  Receipt Date: 20240202
  Transmission Date: 20240409
  Serious: No
  Sender: FDA-Public Use
  Company Number: US-ACADIA PHARMACEUTICALS INC.-ACA-2023-TRF-004493

PATIENT
  Sex: Female

DRUGS (1)
  1. DAYBUE [Suspect]
     Active Substance: TROFINETIDE
     Indication: Rett syndrome
     Dosage: 30 MILLILITER, BID
     Route: 048

REACTIONS (7)
  - Drug ineffective [Unknown]
  - Product dose omission issue [Not Recovered/Not Resolved]
  - Product dose omission issue [Unknown]
  - Illness [Unknown]
  - Vomiting [Not Recovered/Not Resolved]
  - Pyrexia [Not Recovered/Not Resolved]
  - Vomiting [Unknown]
